FAERS Safety Report 11135144 (Version 4)
Quarter: 2016Q4

REPORT INFORMATION
  Report Type: Spontaneous
  Country: US (occurrence: US)
  Receive Date: 20150525
  Receipt Date: 20161125
  Transmission Date: 20170206
  Serious: Yes (Other)
  Sender: FDA-Public Use
  Company Number: US-ASTRAZENECA-2015SE45133

PATIENT
  Sex: Female

DRUGS (1)
  1. LYNPARZA [Suspect]
     Active Substance: OLAPARIB
     Indication: OVARIAN CANCER
     Route: 048
     Dates: start: 20150501, end: 20161117

REACTIONS (6)
  - Red blood cell count increased [Not Recovered/Not Resolved]
  - Abdominal pain upper [Unknown]
  - Arthritis [Unknown]
  - Malignant neoplasm progression [Unknown]
  - Gastrointestinal disorder [Not Recovered/Not Resolved]
  - Fatigue [Unknown]
